FAERS Safety Report 8562865 (Version 3)
Quarter: 2016Q2

REPORT INFORMATION
  Report Type: Report from Study
  Country: US (occurrence: US)
  Receive Date: 20120515
  Receipt Date: 20160505
  Transmission Date: 20160815
  Serious: Yes (Death)
  Sender: FDA-Public Use
  Company Number: US-ROCHE-1068858

PATIENT
  Sex: Female
  Weight: 93.98 kg

DRUGS (27)
  1. ALOXI [Concomitant]
     Active Substance: PALONOSETRON HYDROCHLORIDE
     Dosage: RECEIVED ON 17/AUG/2011, 06/SEP/2011, 27/SEP/2011, 18/OCT/2011, 08/NOV/2011, 30/NOV/2011 AND 27/MAR/
     Route: 042
     Dates: start: 20110726
  2. POTASSIUM CHLORIDE. [Concomitant]
     Active Substance: POTASSIUM CHLORIDE
     Route: 042
     Dates: start: 20111018
  3. DEXAMETHASONE. [Concomitant]
     Active Substance: DEXAMETHASONE
     Dosage: 17/AUG/2011, 06/SEP/2011, 27/SEP/2011, 18/OCT/2011, 08/NOV/2011, 30/NOV/2011 AND 27/MAR/2012
     Route: 050
     Dates: start: 20110726
  4. OXALIPLATIN. [Concomitant]
     Active Substance: OXALIPLATIN
  5. AVASTIN [Suspect]
     Active Substance: BEVACIZUMAB
     Indication: ANAEMIA
     Dosage: ALSO RECEIVED ON 07/JUL/2011, IN 250 ML NORMAL SALINE
     Route: 042
     Dates: start: 20110621
  6. PROCRIT [Concomitant]
     Active Substance: ERYTHROPOIETIN
     Dosage: 90000 UNITS, ASO RECEIVED ON 26/JUL/2011, 27/SEP/2011, 18/OCT/2011 AND 03/NOV/2011
     Route: 058
     Dates: start: 20110327
  7. EMEND [Concomitant]
     Active Substance: APREPITANT
     Route: 048
     Dates: start: 20111108
  8. NEUPOGEN [Concomitant]
     Active Substance: FILGRASTIM
     Route: 058
  9. MEGACE [Concomitant]
     Active Substance: MEGESTROL ACETATE
  10. AVASTIN [Suspect]
     Active Substance: BEVACIZUMAB
     Dosage: ALSO RECEIVED ON 07/JUL/2011, 08/NOV/2011, 24/JAN/2012, 14/FEB/2012, IN 250 ML NORMAL SALINE
     Route: 042
     Dates: start: 20110726
  11. CPT-11 [Concomitant]
     Active Substance: IRINOTECAN
     Dosage: RECEIVED ON 08/NOV/2011, 17/AUG/2011, 06/SEP/2011, 27/MAR/2012, 18/OCT/2011, 27/SEP/2011 AND 30/NOV/
     Route: 042
     Dates: start: 20110726
  12. CAMPTOSAR [Concomitant]
     Active Substance: IRINOTECAN HYDROCHLORIDE
  13. AVASTIN [Suspect]
     Active Substance: BEVACIZUMAB
     Dosage: ALSO RECEIVED ON 27/SEP/2011, 18/OCT/2011, 29/NOV/2011, 27/MAR/2012, IN 250 ML NORMAL SALINE
     Route: 042
     Dates: start: 20110907
  14. NORMAL SALINE [Concomitant]
     Active Substance: SODIUM CHLORIDE
     Dosage: RECEIVED ON 17/AUG/2011, 06/SEP/2011, 18/OCT/2011, 08/NOV/2011, 27/MAR/2012
     Route: 042
     Dates: start: 20110726
  15. AVASTIN [Suspect]
     Active Substance: BEVACIZUMAB
     Dosage: IN 250 ML NORMAL SALINE
     Route: 042
     Dates: start: 20110816
  16. AVASTIN [Suspect]
     Active Substance: BEVACIZUMAB
     Dosage: RECEIVED ON 06/MAR/2012
     Route: 042
  17. EMEND [Concomitant]
     Active Substance: APREPITANT
     Route: 048
     Dates: start: 20111018
  18. XELODA [Suspect]
     Active Substance: CAPECITABINE
     Indication: ANAEMIA
     Dosage: 3 TABLETS TWICE A DAY FOR 14 DAYS
     Route: 048
  19. AVASTIN [Suspect]
     Active Substance: BEVACIZUMAB
     Dosage: ALSO RECEIVED ON 07/JUL/2011, IN 250 ML NORMAL SALINE
     Route: 042
     Dates: start: 20110719
  20. PROCRIT [Concomitant]
     Active Substance: ERYTHROPOIETIN
     Dosage: 80000 UNITS, ALSO RECEIVED ON 06/SEP/2011 AND 24/FEB/2012
     Route: 058
     Dates: start: 20110816
  21. 5% DEXTROSE IN H2O (D5W) [Concomitant]
     Dosage: 26/JUL/2011, 27/SEP/2011 AND 18/OCT/2011,
     Route: 065
  22. 5% DEXTROSE IN H2O (D5W) [Concomitant]
     Route: 065
     Dates: start: 20111130
  23. AVASTIN [Suspect]
     Active Substance: BEVACIZUMAB
     Indication: COLON CANCER
     Dosage: RECEIVED ON 10/MAY/2011, 05/JUN/2011, IN 250 ML NORMAL SALINE
     Route: 042
  24. ATROPINE SULFATE. [Concomitant]
     Active Substance: ATROPINE SULFATE
     Dosage: RECEIVED ON 17/AUG/2011, 07/SEP/2011, 27/SEP/2011, 18/OCT/2011, 01/NOV/2011, 16/NOV/2011, 08/NOV/201
     Route: 042
  25. GRANISETRON [Concomitant]
     Active Substance: GRANISETRON
     Route: 065
  26. XELODA [Suspect]
     Active Substance: CAPECITABINE
     Indication: COLON CANCER
     Dosage: ALSO RECEIVED ON 16/AUG/2011, 06/SEP/2011, 27/SEP/2011, 18/OCT/2011, 08/NOV/2011, 30/NOV/2011, 06/MA
     Route: 048
     Dates: start: 20110726
  27. XELODA [Suspect]
     Active Substance: CAPECITABINE
     Dosage: 4 TABLETS TWICE A DAY FOR 14 DAYS
     Route: 048

REACTIONS (13)
  - Rash erythematous [Unknown]
  - Death [Fatal]
  - Anaemia [Unknown]
  - Blood urine present [Unknown]
  - Musculoskeletal pain [Unknown]
  - Skin discolouration [Unknown]
  - Fatigue [Unknown]
  - Abdominal pain [Unknown]
  - Sciatica [Unknown]
  - Abdominal discomfort [Unknown]
  - Mucous membrane disorder [Unknown]
  - Pain in extremity [Unknown]
  - Diarrhoea [Unknown]
